FAERS Safety Report 10309425 (Version 1)
Quarter: 2014Q3

REPORT INFORMATION
  Report Type: Spontaneous
  Country: AR (occurrence: AR)
  Receive Date: 20140716
  Receipt Date: 20140716
  Transmission Date: 20150326
  Serious: Yes (Other)
  Sender: FDA-Public Use
  Company Number: AR-JNJFOC-20140707963

PATIENT
  Age: 79 Year
  Sex: Female

DRUGS (4)
  1. OPIOIDS NOS [Concomitant]
     Active Substance: UNSPECIFIED INGREDIENT
     Indication: PAIN PROPHYLAXIS
     Dosage: 5 DROPS PER DAY
     Route: 065
  2. IBUPIRAC [Suspect]
     Active Substance: IBUPROFEN
     Indication: PAIN
     Route: 065
  3. ACDOL [Concomitant]
     Indication: PRODUCT USED FOR UNKNOWN INDICATION
     Route: 065
  4. RANITIDINE [Concomitant]
     Active Substance: RANITIDINE\RANITIDINE HYDROCHLORIDE
     Indication: PROPHYLAXIS
     Route: 065

REACTIONS (5)
  - Amnesia [Unknown]
  - Osteoarthritis [Unknown]
  - Breast cancer [Unknown]
  - Drug ineffective [Unknown]
  - Hypertension [Unknown]

NARRATIVE: CASE EVENT DATE: 2013
